FAERS Safety Report 5416032-0 (Version None)
Quarter: 2007Q3

REPORT INFORMATION
  Report Type: 
  Country: None (occurrence: None)
  Receive Date: 20070815
  Receipt Date: 20070809
  Transmission Date: 20080115
  Serious: Yes (Death)
  Sender: FDA-Public Use
  Company Number: US-ABBOTT-07P-163-0374265-00

PATIENT
  Age: 20 Year
  Sex: Female

DRUGS (4)
  1. DEPAKOTE [Suspect]
     Indication: EPILEPSY
  2. ZONISAMIDE [Suspect]
     Indication: EPILEPSY
  3. PRENATAL VITAMINS [Concomitant]
     Indication: DRUG USE FOR UNKNOWN INDICATION
  4. FOLIC ACID [Concomitant]
     Indication: DRUG USE FOR UNKNOWN INDICATION
     Dates: start: 20070222, end: 20070509

REACTIONS (1)
  - INTRA-UTERINE DEATH [None]
